FAERS Safety Report 8474368-3 (Version None)
Quarter: 2012Q2

REPORT INFORMATION
  Report Type: 
  Country: None (occurrence: None)
  Receive Date: 20120628
  Receipt Date: 20111201
  Transmission Date: 20120825
  Serious: Yes (Other)
  Sender: FDA-Public Use
  Company Number: US-MYLANLABS-2011S1024651

PATIENT
  Age: 60 Year
  Sex: Male

DRUGS (11)
  1. CLOZAPINE [Suspect]
     Route: 048
     Dates: start: 20111017
  2. TOPROL-XL [Concomitant]
     Indication: HYPERTENSION
     Route: 048
  3. CLOZAPINE [Suspect]
     Indication: SCHIZOPHRENIA
     Route: 048
     Dates: end: 20111014
  4. LOPID [Concomitant]
     Indication: BLOOD CHOLESTEROL INCREASED
     Route: 048
  5. CLOZAPINE [Suspect]
     Route: 048
     Dates: start: 20111017
  6. ACTOS [Concomitant]
     Indication: DIABETES MELLITUS
     Route: 048
  7. GLIPIZIDE [Concomitant]
     Indication: DIABETES MELLITUS
     Route: 048
  8. PRAVACHOL [Concomitant]
     Indication: BLOOD CHOLESTEROL INCREASED
     Route: 048
  9. LITHIUM CARBONATE [Concomitant]
     Indication: SCHIZOPHRENIA
     Route: 048
  10. CLOZAPINE [Suspect]
     Route: 048
     Dates: end: 20111014
  11. METFORMIN HCL [Concomitant]
     Indication: DIABETES MELLITUS
     Route: 048

REACTIONS (2)
  - GRANULOCYTOPENIA [None]
  - LEUKOPENIA [None]
